FAERS Safety Report 7289555-X (Version None)
Quarter: 2011Q1

REPORT INFORMATION
  Report Type: 
  Country: None (occurrence: None)
  Receive Date: 20110201
  Receipt Date: 20110121
  Transmission Date: 20110831
  Serious: Yes (Hospitalization)
  Sender: FDA-Public Use
  Company Number: US-004590

PATIENT
  Sex: Male
  Weight: 89.5 kg

DRUGS (1)
  1. PROSED/DS (NOT SPECIFIED) [Suspect]
     Indication: URINARY TRACT PAIN
     Dosage: 1 DF TID, ORAL
     Route: 048
     Dates: start: 20110105

REACTIONS (4)
  - HEART RATE INCREASED [None]
  - DYSPNOEA [None]
  - DIZZINESS [None]
  - CONFUSIONAL STATE [None]
